FAERS Safety Report 22227031 (Version 1)
Quarter: 2023Q2

REPORT INFORMATION
  Report Type: Report from Study
  Country: US (occurrence: US)
  Receive Date: 20230419
  Receipt Date: 20230419
  Transmission Date: 20230722
  Serious: No
  Sender: FDA-Public Use
  Company Number: US-DECIPHERA PHARMACEUTICALS LLC-2023US000340

PATIENT
  Sex: Male

DRUGS (1)
  1. QINLOCK [Suspect]
     Active Substance: RIPRETINIB
     Indication: Retroperitoneal cancer
     Dosage: 150 MILLIGRAM, QD
     Route: 048

REACTIONS (2)
  - Disease progression [Unknown]
  - Product use in unapproved indication [Unknown]
